FAERS Safety Report 15392216 (Version 2)
Quarter: 2018Q4

REPORT INFORMATION
  Report Type: Spontaneous
  Country: US (occurrence: US)
  Receive Date: 20180917
  Receipt Date: 20181004
  Transmission Date: 20190204
  Serious: No
  Sender: FDA-Public Use
  Company Number: US-ALEXION PHARMACEUTICALS INC.-A201811569

PATIENT
  Age: 11 Year
  Sex: Male
  Weight: 73.9 kg

DRUGS (1)
  1. STRENSIQ [Suspect]
     Active Substance: ASFOTASE ALFA
     Indication: HYPOPHOSPHATASIA
     Dosage: 0.8 ML (80 MG) FROM 1 OF THE 80 MG/0.8 ML VIALS (GREEN LID), 0.72 ML (72 MG) FROM 1 OF THE 80MG, TIW
     Route: 058

REACTIONS (1)
  - Weight increased [Unknown]

NARRATIVE: CASE EVENT DATE: 20180829
